FAERS Safety Report 11658701 (Version 2)
Quarter: 2015Q4

REPORT INFORMATION
  Report Type: Report from Study
  Country: IN (occurrence: IN)
  Receive Date: 20151026
  Receipt Date: 20151027
  Transmission Date: 20160304
  Serious: Yes (Death)
  Sender: FDA-Public Use
  Company Number: PHHY2015IN136003

PATIENT
  Age: 43 Year
  Sex: Female

DRUGS (1)
  1. TYKERB [Suspect]
     Active Substance: LAPATINIB DITOSYLATE
     Indication: BREAST CANCER METASTATIC
     Dosage: 4 DF, UNK
     Route: 048
     Dates: start: 20140501

REACTIONS (2)
  - Death [Fatal]
  - Hepatic infection [Unknown]

NARRATIVE: CASE EVENT DATE: 20150423
